FAERS Safety Report 8193300-3 (Version None)
Quarter: 2012Q1

REPORT INFORMATION
  Report Type: 
  Country: None (occurrence: None)
  Receive Date: 20120308
  Receipt Date: 20120302
  Transmission Date: 20120608
  Serious: Yes (Other)
  Sender: FDA-Public Use
  Company Number: CA-JNJFOC-20120211710

PATIENT
  Age: 44 Year
  Sex: Male

DRUGS (2)
  1. BENADRYL [Suspect]
     Route: 048
  2. BENADRYL [Suspect]
     Indication: PRURITUS
     Route: 048
     Dates: start: 20110801

REACTIONS (1)
  - DRUG DEPENDENCE [None]
